FAERS Safety Report 9781643 (Version 1)
Quarter: 2013Q4

REPORT INFORMATION
  Report Type: Spontaneous
  Country: US (occurrence: US)
  Receive Date: 20131224
  Receipt Date: 20131224
  Transmission Date: 20140711
  Serious: No
  Sender: FDA-Public Use
  Company Number: US-BAYER-2013-155677

PATIENT
  Age: 89 Year
  Sex: Male
  Weight: 74.83 kg

DRUGS (3)
  1. ALEVE TABLET [Suspect]
     Indication: ANALGESIC THERAPY
     Dosage: 1 DF, QD
     Route: 048
     Dates: start: 201309
  2. GLIPIZIDE [Concomitant]
  3. CALCIUM CITRATE [Concomitant]

REACTIONS (2)
  - Constipation [Not Recovered/Not Resolved]
  - Incorrect drug administration duration [None]
